FAERS Safety Report 8855016 (Version 1)
Quarter: 2012Q4

REPORT INFORMATION
  Report Type: 
  Country: US (occurrence: US)
  Receive Date: 20121023
  Receipt Date: 20121023
  Transmission Date: 20130627
  Serious: No
  Sender: FDA-Public Use
  Company Number: US-PFIZER INC-2012260642

PATIENT
  Sex: Female

DRUGS (2)
  1. ADVIL [Suspect]
     Indication: PAIN
     Dosage: UNK, as needed
     Route: 048
     Dates: end: 201210
  2. ACETAMINOPHEN [Suspect]
     Dosage: UNK

REACTIONS (5)
  - Poor quality drug administered [Unknown]
  - Headache [Unknown]
  - Malaise [Unknown]
  - Hypersensitivity [Unknown]
  - Product odour abnormal [Unknown]
